FAERS Safety Report 6901537-3 (Version None)
Quarter: 2010Q3

REPORT INFORMATION
  Report Type: 
  Country: None (occurrence: None)
  Receive Date: 20100803
  Receipt Date: 20080220
  Transmission Date: 20110219
  Serious: No
  Sender: FDA-Public Use
  Company Number: US-PFIZER INC-2008016783

PATIENT
  Sex: Female

DRUGS (3)
  1. LYRICA [Suspect]
     Dosage: 300 MG DAILY EVERY DAY TDD:300 MG
  2. ALL OTHER THERAPEUTIC PRODUCTS [Concomitant]
  3. SPECIFIC ANTIRHEUMATIC AGENTS [Concomitant]

REACTIONS (1)
  - FEELING ABNORMAL [None]
